FAERS Safety Report 5249305-5 (Version None)
Quarter: 2007Q1

REPORT INFORMATION
  Report Type: 
  Country: None (occurrence: None)
  Receive Date: 20070223
  Receipt Date: 20070209
  Transmission Date: 20070707
  Serious: Yes (Hospitalization, Other)
  Sender: FDA-Public Use
  Company Number: 070214-0000188

PATIENT
  Age: 36 Hour
  Sex: Female

DRUGS (4)
  1. INDOCIN [Suspect]
     Indication: DRUG USE FOR UNKNOWN INDICATION
     Dosage: SEE IMAGE
     Route: 042
  2. DOPAMINE HCL [Concomitant]
  3. HEPARIN SODIUM [Concomitant]
  4. TISSUE PLASMINOGEN ACTIVATOR [Concomitant]

REACTIONS (7)
  - CATHETER RELATED COMPLICATION [None]
  - CATHETER SITE RELATED REACTION [None]
  - GANGRENE [None]
  - LEG AMPUTATION [None]
  - NEONATAL DISORDER [None]
  - NEONATAL HYPOTENSION [None]
  - PERIPHERAL ISCHAEMIA [None]
